FAERS Safety Report 20542809 (Version 10)
Quarter: 2022Q3

REPORT INFORMATION
  Report Type: Spontaneous
  Country: PL (occurrence: PL)
  Receive Date: 20220302
  Receipt Date: 20220929
  Transmission Date: 20221027
  Serious: Yes (Other)
  Sender: FDA-Public Use
  Company Number: PL-NOVARTISPH-NVSC2022PL048931

PATIENT
  Age: 40 Year
  Sex: Female

DRUGS (12)
  1. QUETIAPINE [Interacting]
     Active Substance: QUETIAPINE
     Indication: Depression
     Dosage: 150 MG, QD
     Route: 065
  2. QUETIAPINE [Interacting]
     Active Substance: QUETIAPINE
     Dosage: 200 MG, QD (INCREASED THE QUETIAPINE DOSE BY 50 MG, BEFORE BEDTIME)
     Route: 065
  3. ATORVASTATIN [Interacting]
     Active Substance: ATORVASTATIN
     Indication: Dyslipidaemia
     Dosage: 20 MG, QD
     Route: 065
  4. FLUCONAZOLE [Interacting]
     Active Substance: FLUCONAZOLE
     Indication: Dysuria
     Dosage: 200 MG, QD (WITH A PREPARATION CONTAINING CRANBERRY EXTRACT)
     Route: 048
  5. FLUCONAZOLE [Interacting]
     Active Substance: FLUCONAZOLE
     Indication: Vaginal discharge
  6. FLUCONAZOLE [Interacting]
     Active Substance: FLUCONAZOLE
     Indication: Micturition disorder
  7. CRANBERRY [Interacting]
     Active Substance: CRANBERRY
     Indication: Dysuria
     Dosage: 300 MG
     Route: 065
  8. CRANBERRY [Interacting]
     Active Substance: CRANBERRY
     Indication: Vaginal discharge
  9. CRANBERRY [Interacting]
     Active Substance: CRANBERRY
     Indication: Micturition disorder
  10. BIOTIN [Interacting]
     Active Substance: BIOTIN
     Indication: Alopecia
     Dosage: 20 MG, QD
     Route: 065
  11. PAROXETINE [Concomitant]
     Active Substance: PAROXETINE
     Indication: Depression
     Dosage: 20 MG, QD
     Route: 065
  12. PAROXETINE [Concomitant]
     Active Substance: PAROXETINE
     Dosage: DOSE WAS INCREASED TO 40 MG PER DAY
     Route: 065

REACTIONS (7)
  - Drug level increased [Recovering/Resolving]
  - Leukopenia [Recovered/Resolved]
  - Hypothyroidism [Recovered/Resolved]
  - Thrombocytopenia [Recovered/Resolved]
  - Potentiating drug interaction [Unknown]
  - Food interaction [Unknown]
  - Drug ineffective for unapproved indication [Unknown]
